FAERS Safety Report 8235680-6 (Version None)
Quarter: 2012Q1

REPORT INFORMATION
  Report Type: 
  Country: None (occurrence: None)
  Receive Date: 20120326
  Receipt Date: 20120320
  Transmission Date: 20120608
  Serious: Yes (Death)
  Sender: FDA-Public Use
  Company Number: DE-GILEAD-2012-0052683

PATIENT
  Sex: Male

DRUGS (10)
  1. RANOLAZINE [Suspect]
     Indication: ANGINA PECTORIS
     Dosage: 375 MG, UNK
     Route: 048
     Dates: start: 20120204, end: 20120304
  2. TORSEMIDE [Concomitant]
  3. CLOPIDOGREL [Concomitant]
  4. ENALAPRIL MALEATE [Concomitant]
  5. METFORMIN HCL [Concomitant]
     Indication: DIABETES MELLITUS
  6. ASPIRIN [Concomitant]
  7. MOLSIDOMINE [Concomitant]
  8. NITROGLYCERIN [Concomitant]
  9. METOPROLOL SUCCINATE [Concomitant]
  10. ISOSORBIDE DINITRATE [Concomitant]

REACTIONS (1)
  - ACUTE MYOCARDIAL INFARCTION [None]
